FAERS Safety Report 8073983-9 (Version None)
Quarter: 2012Q1

REPORT INFORMATION
  Report Type: 
  Country: None (occurrence: None)
  Receive Date: 20120126
  Receipt Date: 20120116
  Transmission Date: 20120608
  Serious: Yes (Other)
  Sender: FDA-Public Use
  Company Number: US-ELI_LILLY_AND_COMPANY-US201201005524

PATIENT
  Sex: Female

DRUGS (4)
  1. ASPIRIN [Concomitant]
     Dosage: UNK, QD
  2. METOPROLOL TARTRATE [Concomitant]
     Dosage: UNK, QD
  3. EFFIENT [Suspect]
     Indication: STENT PLACEMENT
     Dosage: 10 MG, QD
     Dates: start: 20110301
  4. CRESTOR [Concomitant]
     Dosage: UNK, QD

REACTIONS (2)
  - STENT PLACEMENT [None]
  - VASCULAR GRAFT [None]
